FAERS Safety Report 4457278-8 (Version None)
Quarter: 2004Q3

REPORT INFORMATION
  Report Type: 
  Country: None (occurrence: None)
  Receive Date: 20040922
  Receipt Date: 20040909
  Transmission Date: 20050211
  Serious: Yes (Hospitalization, Other)
  Sender: FDA-Public Use
  Company Number: 2004064544

PATIENT
  Age: 53 Year
  Sex: Female
  Weight: 75.2971 kg

DRUGS (7)
  1. ZOLOFT [Suspect]
     Indication: COMPULSIONS
     Dosage: 25 MG (25 MG, 1 IN 1 D), ORAL
     Route: 048
     Dates: start: 20020301
  2. FORMOTEROL FUMARATE (FORMOTEROL FUMARATE) [Concomitant]
  3. SALBUTAMOL (SALBUTAMOL) [Concomitant]
  4. PRIMIDONE [Concomitant]
  5. FAMOTIDINE [Concomitant]
  6. INSULIN ASPART (INSULIN ASPART) [Concomitant]
  7. NARINE REPETABS (LORATADINE, PSEUDOEPHEDRINE SULFATE) [Concomitant]

REACTIONS (9)
  - ANXIETY [None]
  - CRYING [None]
  - DYSPNOEA [None]
  - FATIGUE [None]
  - INSOMNIA [None]
  - MIDDLE INSOMNIA [None]
  - PNEUMONIA [None]
  - TREATMENT NONCOMPLIANCE [None]
  - WEIGHT DECREASED [None]
